FAERS Safety Report 6270550-4 (Version None)
Quarter: 2009Q3

REPORT INFORMATION
  Report Type: 
  Country: None (occurrence: None)
  Receive Date: 20090716
  Receipt Date: 20090703
  Transmission Date: 20100115
  Serious: Yes (Death, Hospitalization)
  Sender: FDA-Public Use
  Company Number: MX-PFIZER INC-2009237127

PATIENT
  Age: 79 Year

DRUGS (1)
  1. LYRICA [Suspect]
     Indication: POST HERPETIC NEURALGIA
     Dosage: 75 MG, UNK
     Dates: start: 20090629, end: 20090629

REACTIONS (2)
  - DEATH [None]
  - SOMNOLENCE [None]
